FAERS Safety Report 15061304 (Version 1)
Quarter: 2018Q2

REPORT INFORMATION
  Report Type: Spontaneous
  Country: US (occurrence: US)
  Receive Date: 20180625
  Receipt Date: 20180625
  Transmission Date: 20180711
  Serious: No
  Sender: FDA-Public Use
  Company Number: US-ROCHE-2046743

PATIENT
  Sex: Male

DRUGS (3)
  1. XELODA [Suspect]
     Active Substance: CAPECITABINE
     Route: 048
     Dates: start: 20170630
  2. PANTOPRAZOLE SODIUM. [Concomitant]
     Active Substance: PANTOPRAZOLE SODIUM
  3. XELODA [Suspect]
     Active Substance: CAPECITABINE
     Indication: COLON CANCER
     Route: 048
     Dates: start: 20170721

REACTIONS (2)
  - Hypoaesthesia [Unknown]
  - Ageusia [Unknown]
